FAERS Safety Report 17905440 (Version 1)
Quarter: 2020Q2

REPORT INFORMATION
  Report Type: Spontaneous
  Country: US (occurrence: US)
  Receive Date: 20200616
  Receipt Date: 20200616
  Transmission Date: 20200714
  Serious: Yes (Hospitalization)
  Sender: FDA-Public Use
  Company Number: None

PATIENT
  Age: 86 Year
  Sex: Male

DRUGS (12)
  1. DOXYCYCL HYC [Concomitant]
  2. ESBRIET [Suspect]
     Active Substance: PIRFENIDONE
     Indication: IDIOPATHIC PULMONARY FIBROSIS
     Route: 048
     Dates: start: 20171230
  3. ALBUTEROL AER [Concomitant]
  4. AZITHROMYCIN ANHYDROUS. [Concomitant]
     Active Substance: AZITHROMYCIN ANHYDROUS
  5. ONDANSETRON [Concomitant]
     Active Substance: ONDANSETRON
  6. PREDNISONE. [Concomitant]
     Active Substance: PREDNISONE
  7. TORSEMIDE. [Concomitant]
     Active Substance: TORSEMIDE
  8. CEFUROXIME. [Concomitant]
     Active Substance: CEFUROXIME
  9. DOXYCYC MONO [Concomitant]
     Active Substance: DOXYCYCLINE
  10. METHYLPRED [Concomitant]
     Active Substance: METHYLPREDNISOLONE
  11. METOLAZONE. [Concomitant]
     Active Substance: METOLAZONE
  12. BENZONATATE. [Concomitant]
     Active Substance: BENZONATATE

REACTIONS (2)
  - Malaise [None]
  - Overdose [None]

NARRATIVE: CASE EVENT DATE: 20200527
